FAERS Safety Report 9464665 (Version 1)
Quarter: 2013Q3

REPORT INFORMATION
  Report Type: Spontaneous
  Country: US (occurrence: US)
  Receive Date: 20130819
  Receipt Date: 20130819
  Transmission Date: 20140515
  Serious: Yes (Hospitalization)
  Sender: FDA-Public Use
  Company Number: US-B.I. PHARMACEUTICALS,INC./RIDGEFIELD-2013-BI-24475BP

PATIENT
  Age: 80 Year
  Sex: Male
  Weight: 70 kg

DRUGS (8)
  1. COMBIVENT [Suspect]
     Indication: CHRONIC OBSTRUCTIVE PULMONARY DISEASE
     Dosage: STRENGTH: 20 MCG / 100 MCG; DAILY DOSE: 80 MCG / 400 MCG
     Route: 055
     Dates: start: 20130702
  2. COMBIVENT [Suspect]
     Indication: CHRONIC OBSTRUCTIVE PULMONARY DISEASE
     Dosage: STRENGTH: 18 MCG / 103 MCG; DAILY DOSE: 144 MCG / 824 MCG
     Route: 055
     Dates: start: 1998, end: 20130701
  3. PRADAXA [Concomitant]
     Indication: ATRIAL FIBRILLATION
     Dosage: 300 MG
     Route: 048
     Dates: start: 2010, end: 2011
  4. LISINOPRIL [Concomitant]
     Indication: HYPERTENSION
     Dosage: 1.25 MG
     Route: 048
     Dates: start: 1993
  5. LIPITOR [Concomitant]
     Indication: BLOOD CHOLESTEROL INCREASED
     Dosage: 20 MG
     Route: 048
     Dates: start: 1991
  6. WARFARIN [Concomitant]
     Indication: ATRIAL FIBRILLATION
     Dosage: 1 MG
     Route: 048
     Dates: start: 2008
  7. CARVEDILOL [Concomitant]
     Indication: ATRIAL FIBRILLATION
     Dosage: 9.375 MG
     Route: 048
     Dates: start: 201306
  8. DIGOXIN [Concomitant]
     Indication: MYOCARDIAL INFARCTION
     Dosage: 0.25 MG
     Route: 048
     Dates: start: 1993

REACTIONS (2)
  - Heart rate decreased [Recovered/Resolved]
  - Cough [Not Recovered/Not Resolved]
